FAERS Safety Report 4521554-0 (Version None)
Quarter: 2004Q4

REPORT INFORMATION
  Report Type: 
  Country: None (occurrence: None)
  Receive Date: 20041101
  Receipt Date: 20040317
  Transmission Date: 20050328
  Serious: Yes (Hospitalization, Other)
  Sender: FDA-Public Use
  Company Number: 139731USA

PATIENT
  Sex: Female
  Weight: 91.3544 kg

DRUGS (3)
  1. ADRUCIL [Suspect]
     Indication: CERVIX CARCINOMA
     Dates: start: 20031125, end: 20031129
  2. CELEBREX [Suspect]
     Indication: CERVIX CARCINOMA
     Dosage: 800 MILLIGRAM DAILY ORAL
     Route: 048
     Dates: start: 20031124, end: 20031129
  3. CISPLATIN [Suspect]
     Indication: CERVIX CARCINOMA
     Dates: start: 20031124, end: 20031128

REACTIONS (3)
  - ARTERIOSPASM CORONARY [None]
  - PNEUMONIA [None]
  - RASH [None]
